FAERS Safety Report 18851639 (Version 1)
Quarter: 2021Q1

REPORT INFORMATION
  Report Type: Spontaneous
  Country: US (occurrence: US)
  Receive Date: 20210205
  Receipt Date: 20210205
  Transmission Date: 20210420
  Serious: Yes (Other)
  Sender: FDA-Public Use
  Company Number: US-SA-2021SA033530

PATIENT
  Age: 79 Year
  Sex: Male

DRUGS (1)
  1. TAXOTERE [Suspect]
     Active Substance: DOCETAXEL
     Dosage: UNK
     Route: 065

REACTIONS (3)
  - Diarrhoea [Unknown]
  - Neuropathy peripheral [Unknown]
  - Constipation [Unknown]

NARRATIVE: CASE EVENT DATE: 20200819
